FAERS Safety Report 9471379 (Version 1)
Quarter: 2013Q3

REPORT INFORMATION
  Report Type: Spontaneous
  Country: GB (occurrence: GB)
  Receive Date: 20130822
  Receipt Date: 20130822
  Transmission Date: 20140515
  Serious: Yes (Life-Threatening, Hospitalization)
  Sender: FDA-Public Use
  Company Number: GB-TEVA-427330ISR

PATIENT
  Sex: Female

DRUGS (2)
  1. SIMVASTATIN [Suspect]
     Dosage: 40 MILLIGRAM DAILY;
     Route: 048
     Dates: end: 20130731
  2. FUCIDIN [Suspect]
     Indication: OSTEOMYELITIS
     Dosage: 1500 MILLIGRAM DAILY;
     Route: 048
     Dates: start: 20130723

REACTIONS (3)
  - Rhabdomyolysis [Recovering/Resolving]
  - Muscular weakness [Recovering/Resolving]
  - Paralysis [Recovering/Resolving]
